FAERS Safety Report 7114791-2 (Version None)
Quarter: 2010Q4

REPORT INFORMATION
  Report Type: 
  Country: None (occurrence: None)
  Receive Date: 20101122
  Receipt Date: 20101108
  Transmission Date: 20110411
  Serious: No
  Sender: FDA-Public Use
  Company Number: US-BIOGENIDEC-2010BI039613

PATIENT
  Age: 33 Year
  Sex: Female

DRUGS (1)
  1. TYSABRI [Suspect]
     Indication: MULTIPLE SCLEROSIS
     Dates: start: 20100819

REACTIONS (5)
  - AMNESIA [None]
  - GENERAL SYMPTOM [None]
  - LOSS OF CONSCIOUSNESS [None]
  - TREMOR [None]
  - VOMITING [None]
